FAERS Safety Report 16840354 (Version 1)
Quarter: 2019Q3

REPORT INFORMATION
  Report Type: Spontaneous
  Country: US (occurrence: US)
  Receive Date: 20190923
  Receipt Date: 20190923
  Transmission Date: 20191005
  Serious: No
  Sender: FDA-Public Use
  Company Number: US-BAUSCH-BL-2019-025124

PATIENT
  Age: 11 Year
  Sex: Female

DRUGS (1)
  1. LUMIFY [Suspect]
     Active Substance: BRIMONIDINE TARTRATE
     Indication: OCULAR HYPERAEMIA
     Dosage: FREQUENCY: SINGLE/ 1 DROP IN EACH EYE ONE TIME
     Route: 047
     Dates: start: 20190824, end: 20190824

REACTIONS (3)
  - Eye irritation [Not Recovered/Not Resolved]
  - Eye swelling [Recovering/Resolving]
  - Ocular hyperaemia [Not Recovered/Not Resolved]

NARRATIVE: CASE EVENT DATE: 20190824
